FAERS Safety Report 7767255-7 (Version None)
Quarter: 2011Q3

REPORT INFORMATION
  Report Type: 
  Country: None (occurrence: None)
  Receive Date: 20110922
  Receipt Date: 20101228
  Transmission Date: 20111222
  Serious: No
  Sender: FDA-Public Use
  Company Number: US-ASTRAZENECA-2010SE61061

PATIENT
  Age: 36 Year
  Sex: Female
  Weight: 127.9 kg

DRUGS (2)
  1. SEROQUEL [Suspect]
     Indication: BIPOLAR DISORDER
     Route: 048
  2. SEROQUEL [Suspect]
     Indication: PSYCHOTIC DISORDER
     Route: 048

REACTIONS (5)
  - INSOMNIA [None]
  - TACHYPHRENIA [None]
  - WEIGHT INCREASED [None]
  - IMPAIRED WORK ABILITY [None]
  - MIGRAINE [None]
